FAERS Safety Report 10667369 (Version 1)
Quarter: 2014Q4

REPORT INFORMATION
  Report Type: Spontaneous
  Country: US (occurrence: None)
  Receive Date: 20141219
  Receipt Date: 20141219
  Transmission Date: 20150529
  Serious: Yes (Hospitalization)
  Sender: FDA-Public Use
  Company Number: None

PATIENT
  Age: 58 Year
  Sex: Male
  Weight: 79.4 kg

DRUGS (3)
  1. 5-FU [Suspect]
     Active Substance: FLUOROURACIL
     Indication: OESOPHAGEAL ADENOCARCINOMA
     Dosage: INITIATION OF CYCLE 2 OF CHEMOTHERAPY CONSISTING  OF 5-FU (96 HOUR PUMP ) AND OXALIPLARIN
     Dates: start: 20141217
  2. OXALIPLATIN. [Suspect]
     Active Substance: OXALIPLATIN
  3. MRT [Suspect]
     Active Substance: UNSPECIFIED INGREDIENT

REACTIONS (1)
  - Nausea [None]

NARRATIVE: CASE EVENT DATE: 20141217
